FAERS Safety Report 6551071-8 (Version None)
Quarter: 2010Q1

REPORT INFORMATION
  Report Type: 
  Country: None (occurrence: None)
  Receive Date: 20100122
  Receipt Date: 20100122
  Transmission Date: 20100710
  Serious: Yes (Life-Threatening, Hospitalization, Other)
  Sender: FDA-Public Use
  Company Number: None

PATIENT
  Sex: Male
  Weight: 69.4003 kg

DRUGS (7)
  1. ROCEPHIN [Suspect]
     Dosage: 1000MG ONCE IM
     Route: 030
     Dates: start: 20091215, end: 20091215
  2. SEPTRA DS [Suspect]
     Dosage: 160/800 ONCE PO
     Route: 048
     Dates: start: 20100118, end: 20100118
  3. LEVETIRACETAM [Concomitant]
  4. COLCHICINE [Concomitant]
  5. LEVOTHYROXINE SODIUM [Concomitant]
  6. M.V.I. [Concomitant]
  7. MIRALAX [Concomitant]

REACTIONS (4)
  - DOCUMENTED HYPERSENSITIVITY TO ADMINISTERED DRUG [None]
  - DRUG HYPERSENSITIVITY [None]
  - HYPOTENSION [None]
  - RASH [None]
